FAERS Safety Report 23169804 (Version 8)
Quarter: 2025Q3

REPORT INFORMATION
  Report Type: Report from Study
  Country: CA (occurrence: CA)
  Receive Date: 20231110
  Receipt Date: 20250711
  Transmission Date: 20251020
  Serious: Yes (Hospitalization, Other)
  Sender: TAKEDA
  Company Number: CA-TAKEDA-2019TUS046715

PATIENT
  Age: 67 Year
  Sex: Male

DRUGS (40)
  1. VEDOLIZUMAB [Suspect]
     Active Substance: VEDOLIZUMAB
     Indication: Crohn^s disease
  2. VEDOLIZUMAB [Suspect]
     Active Substance: VEDOLIZUMAB
     Dosage: 300 MILLIGRAM, Q4WEEKS
     Dates: start: 20190211
  3. VEDOLIZUMAB [Suspect]
     Active Substance: VEDOLIZUMAB
     Dosage: 300 MILLIGRAM, Q4WEEKS
  4. VEDOLIZUMAB [Suspect]
     Active Substance: VEDOLIZUMAB
     Dosage: 300 MILLIGRAM, Q4WEEKS
  5. VEDOLIZUMAB [Suspect]
     Active Substance: VEDOLIZUMAB
     Dosage: 300 MILLIGRAM, Q4WEEKS
  6. VEDOLIZUMAB [Suspect]
     Active Substance: VEDOLIZUMAB
     Dosage: 300 MILLIGRAM, Q4WEEKS
     Dates: end: 20240424
  7. PENTASA [Concomitant]
     Active Substance: MESALAMINE
     Dosage: 4 GRAM, QD
  8. PENTASA [Concomitant]
     Active Substance: MESALAMINE
  9. PENTASA [Concomitant]
     Active Substance: MESALAMINE
  10. VITAMIN D [Concomitant]
     Active Substance: VITAMIN D NOS
     Indication: Supplementation therapy
  11. VITAMIN D [Concomitant]
     Active Substance: VITAMIN D NOS
     Indication: Bone disorder
  12. XARELTO [Concomitant]
     Active Substance: RIVAROXABAN
  13. TAMSULOSIN [Concomitant]
     Active Substance: TAMSULOSIN
     Dosage: 0.4 MILLIGRAM, QD
  14. CALCIUM CARBONATE\ERGOCALCIFEROL\RETINOL [Concomitant]
     Active Substance: CALCIUM CARBONATE\ERGOCALCIFEROL\RETINOL
  15. RETINOL [Concomitant]
     Active Substance: RETINOL
  16. BISOPROLOL [Concomitant]
     Active Substance: BISOPROLOL
  17. BISOPROLOL [Concomitant]
     Active Substance: BISOPROLOL
  18. BISOPROLOL [Concomitant]
     Active Substance: BISOPROLOL
     Dosage: 1.25 MILLIGRAM, QD
  19. IRON [Concomitant]
     Active Substance: IRON
  20. ALPHA LIPOIC ACID [Concomitant]
     Active Substance: .ALPHA.-LIPOIC ACID
     Dosage: 150 MILLIGRAM, QD
  21. APIXABAN [Concomitant]
     Active Substance: APIXABAN
     Dosage: 5 MILLIGRAM, BID
  22. BERBERINE CHLORIDE [Concomitant]
     Active Substance: BERBERINE CHLORIDE
     Dosage: 500 MILLIGRAM, QD
  23. BETAINE [Concomitant]
     Active Substance: BETAINE
     Dosage: UNK UNK, QD
  24. CALCIUM CARBONATE\CHOLECALCIFEROL [Concomitant]
     Active Substance: CALCIUM CARBONATE\CHOLECALCIFEROL
     Dosage: 1625 MILLIGRAM, BID
  25. UBIQUINOL [Concomitant]
     Active Substance: UBIQUINOL
     Dosage: 400 MILLIGRAM, QD
  26. VITAMIN B12 [Concomitant]
     Active Substance: CYANOCOBALAMIN
     Dosage: 1200 MICROGRAM, 1/WEEK
  27. METRONIDAZOLE [Concomitant]
     Active Substance: METRONIDAZOLE
     Dosage: 1 PERCENT, QD
     Route: 061
  28. HYALURONIC ACID [Concomitant]
     Active Substance: HYALURONIC ACID
     Dosage: UNK UNK, QD
  29. SULFORAPHANE [Concomitant]
     Active Substance: SULFORAPHANE
  30. PANTOPRAZOLE SODIUM [Concomitant]
     Active Substance: PANTOPRAZOLE SODIUM
     Dosage: 40 MILLIGRAM, BID
  31. PREDNISONE [Concomitant]
     Active Substance: PREDNISONE
  32. QUERCETIN [Concomitant]
     Active Substance: QUERCETIN
  33. DIETARY SUPPLEMENT\RESVERATROL [Concomitant]
     Active Substance: DIETARY SUPPLEMENT\RESVERATROL
  34. SELENIUM [Concomitant]
     Active Substance: SELENIUM
     Dosage: 200 MICROGRAM, 1/WEEK
  35. CHOLESTYRAMINE [Concomitant]
     Active Substance: CHOLESTYRAMINE
  36. SACCHARIN [Concomitant]
     Active Substance: SACCHARIN
  37. LORAZEPAM [Concomitant]
     Active Substance: LORAZEPAM
  38. POLYETHYLENE GLYCOL 3350\POTASSIUM CHLORIDE\SODIUM BICARBONATE\SODIUM [Concomitant]
     Active Substance: POLYETHYLENE GLYCOL 3350\POTASSIUM CHLORIDE\SODIUM BICARBONATE\SODIUM CHLORIDE\SODIUM SULFATE
  39. MESALAMINE [Concomitant]
     Active Substance: MESALAMINE
  40. ZOLEDRONIC ACID [Concomitant]
     Active Substance: ZOLEDRONIC ACID

REACTIONS (20)
  - Crohn^s disease [Recovered/Resolved]
  - Intestinal obstruction [Unknown]
  - Peptic ulcer [Unknown]
  - Duodenal ulcer [Unknown]
  - Acute kidney injury [Unknown]
  - Sinus node dysfunction [Unknown]
  - Atrial fibrillation [Unknown]
  - Syncope [Unknown]
  - Pneumonia [Unknown]
  - Diarrhoea [Unknown]
  - Irritability [Unknown]
  - Treatment failure [Unknown]
  - Blood calcium decreased [Unknown]
  - Blood albumin decreased [Unknown]
  - Anaemia [Unknown]
  - Bone density decreased [Unknown]
  - Large intestine polyp [Unknown]
  - Asthenia [Recovered/Resolved]
  - Vomiting [Unknown]
  - Bronchitis [Unknown]

NARRATIVE: CASE EVENT DATE: 20190701
